FAERS Safety Report 12624614 (Version 2)
Quarter: 2016Q3

REPORT INFORMATION
  Report Type: Report from Study
  Country: US (occurrence: US)
  Receive Date: 20160805
  Receipt Date: 20160810
  Transmission Date: 20161109
  Serious: No
  Sender: FDA-Public Use
  Company Number: PHEH2016US019299

PATIENT
  Sex: Male

DRUGS (1)
  1. GLEEVEC [Suspect]
     Active Substance: IMATINIB MESYLATE
     Indication: PRODUCT USED FOR UNKNOWN INDICATION
     Route: 065

REACTIONS (14)
  - Rash [Unknown]
  - General physical condition abnormal [Unknown]
  - Nasal ulcer [Unknown]
  - Ear disorder [Unknown]
  - Dry skin [Unknown]
  - Malaise [Unknown]
  - Dizziness [Unknown]
  - Hair colour changes [Not Recovered/Not Resolved]
  - Nausea [Unknown]
  - Asthenia [Unknown]
  - Nail disorder [Recovering/Resolving]
  - Acrochordon [Recovering/Resolving]
  - Skin papilloma [Recovering/Resolving]
  - Urticaria [Unknown]
